FAERS Safety Report 4445280-1 (Version None)
Quarter: 2004Q3

REPORT INFORMATION
  Report Type: 
  Country: None (occurrence: None)
  Receive Date: 20040730
  Receipt Date: 20040614
  Transmission Date: 20050211
  Serious: No
  Sender: FDA-Public Use
  Company Number: PHEH2004US06492

PATIENT
  Age: 78 Year
  Sex: Male

DRUGS (1)
  1. GLEEVEC [Suspect]
     Indication: CHRONIC MYELOID LEUKAEMIA
     Dosage: 400 MG,QD,ORAL
     Route: 048
     Dates: start: 20040101

REACTIONS (2)
  - BREAST ENGORGEMENT [None]
  - BREAST PAIN [None]
